FAERS Safety Report 14965099 (Version 4)
Quarter: 2018Q3

REPORT INFORMATION
  Report Type: Spontaneous
  Country: US (occurrence: US)
  Receive Date: 20180601
  Receipt Date: 20180830
  Transmission Date: 20181010
  Serious: Yes (Hospitalization)
  Sender: FDA-Public Use
  Company Number: US-PRINSTON PHARMACEUTICAL INC.-2018PRN00270

PATIENT
  Age: 82 Year
  Sex: Male
  Weight: 63.49 kg

DRUGS (9)
  1. VITAMIN D3 [Concomitant]
     Active Substance: CHOLECALCIFEROL
  2. FUROSEMIDE. [Suspect]
     Active Substance: FUROSEMIDE
     Indication: HYPERTENSION
  3. FISH OIL [Concomitant]
     Active Substance: FISH OIL
  4. FUROSEMIDE. [Suspect]
     Active Substance: FUROSEMIDE
     Indication: FLUID RETENTION
     Dosage: 20 MG, 1X/DAY
     Route: 048
     Dates: start: 201803, end: 201805
  5. UNSPECIFIED VITAMINS [Concomitant]
     Active Substance: VITAMINS
  6. TENORMIN [Concomitant]
     Active Substance: ATENOLOL
  7. CLARITIN [Concomitant]
     Active Substance: LORATADINE
  8. ASPIRIN. [Concomitant]
     Active Substance: ASPIRIN
  9. THERAGRAN [Concomitant]
     Active Substance: VITAMINS

REACTIONS (23)
  - Drug ineffective [Recovered/Resolved]
  - Scar [Not Recovered/Not Resolved]
  - Cellulitis [Recovering/Resolving]
  - Skin disorder [Recovering/Resolving]
  - Skin infection [Recovering/Resolving]
  - Pain [Not Recovered/Not Resolved]
  - Wound [Recovering/Resolving]
  - Gait disturbance [Not Recovered/Not Resolved]
  - Sensory disturbance [Unknown]
  - Acute kidney injury [Recovered/Resolved]
  - Sepsis [Unknown]
  - Erythema [Not Recovered/Not Resolved]
  - Hypernatraemia [Recovered/Resolved]
  - Wound secretion [Recovered/Resolved]
  - Peripheral swelling [Recovering/Resolving]
  - Skin weeping [Recovered/Resolved]
  - Laceration [Recovering/Resolving]
  - Atrial fibrillation [Recovered/Resolved]
  - Weight bearing difficulty [Not Recovered/Not Resolved]
  - Cardiac failure congestive [Recovering/Resolving]
  - Fall [Unknown]
  - Skin exfoliation [Not Recovered/Not Resolved]
  - Thyroid mass [Unknown]

NARRATIVE: CASE EVENT DATE: 2018
